FAERS Safety Report 12880461 (Version 1)
Quarter: 2016Q4

REPORT INFORMATION
  Report Type: Spontaneous
  Country: AU (occurrence: AU)
  Receive Date: 20161025
  Receipt Date: 20161025
  Transmission Date: 20170207
  Serious: Yes (Life-Threatening, Hospitalization)
  Sender: FDA-Public Use
  Company Number: AU-DEPOMED, INC.-AU-2016DEP012475

PATIENT
  Age: 43 Year
  Sex: Male

DRUGS (1)
  1. DICLOFENAC [Suspect]
     Active Substance: DICLOFENAC
     Indication: BACK PAIN
     Dosage: 50 MG, UNK

REACTIONS (8)
  - Acidosis hyperchloraemic [Unknown]
  - Pain in extremity [Unknown]
  - Renal tubular acidosis [Unknown]
  - Overdose [Recovered/Resolved]
  - Microcytic anaemia [Unknown]
  - Hypokalaemia [Recovered/Resolved]
  - Muscular weakness [Unknown]
  - Potassium wasting nephropathy [Unknown]
